FAERS Safety Report 9031441 (Version 2)
Quarter: 2013Q1

REPORT INFORMATION
  Report Type: Spontaneous
  Country: JP (occurrence: JP)
  Receive Date: 20130124
  Receipt Date: 20130211
  Transmission Date: 20140127
  Serious: No
  Sender: FDA-Public Use
  Company Number: JP-009507513-1301JPN010661

PATIENT
  Age: 65 Year
  Sex: Male
  Weight: 52 kg

DRUGS (8)
  1. PEGINTRON [Suspect]
     Indication: CHRONIC HEPATITIS C
     Dosage: 1.5 MICROGRAM PER KILOGRAM/WEEK
     Route: 058
     Dates: start: 20130110
  2. REBETOL [Suspect]
     Indication: CHRONIC HEPATITIS C
     Dosage: 400 MG, QD
     Route: 048
     Dates: start: 20130110, end: 20130113
  3. REBETOL [Suspect]
     Dosage: 400 MG, QD
     Route: 048
     Dates: start: 20130116
  4. TELAVIC [Suspect]
     Indication: CHRONIC HEPATITIS C
     Dosage: 1500 MG, QD
     Route: 048
     Dates: start: 20130110, end: 20130113
  5. TELAVIC [Suspect]
     Dosage: 1500 MG, QD
     Route: 048
     Dates: start: 20130121
  6. EVIPROSTAT (HORSETAIL (+) MANGANESE SULFATE (+) PIPSISSEWA (+) POPULUS [Concomitant]
     Dosage: 2 DF, QD
     Route: 048
  7. URIEF [Concomitant]
     Dosage: 8 MG, QD
     Route: 048
  8. PARIET [Concomitant]
     Indication: PROPHYLAXIS
     Dosage: 10 MG, QD
     Route: 048
     Dates: start: 20130115

REACTIONS (1)
  - Erythema [Recovering/Resolving]
